FAERS Safety Report 5397104-6 (Version None)
Quarter: 2007Q3

REPORT INFORMATION
  Report Type: 
  Country: None (occurrence: None)
  Receive Date: 20070725
  Receipt Date: 20070713
  Transmission Date: 20080115
  Serious: Yes (Hospitalization, Other)
  Sender: FDA-Public Use
  Company Number: DE-PFIZER INC-2007047073

PATIENT
  Sex: Female

DRUGS (1)
  1. CHAMPIX [Suspect]
     Indication: EX-SMOKER
     Route: 048

REACTIONS (5)
  - AGGRESSION [None]
  - ALCOHOLISM [None]
  - DRUG INEFFECTIVE [None]
  - PSYCHOTIC DISORDER [None]
  - VOMITING [None]
